FAERS Safety Report 23460301 (Version 3)
Quarter: 2024Q1

REPORT INFORMATION
  Report Type: Spontaneous
  Country: KR (occurrence: KP)
  Receive Date: 20240131
  Receipt Date: 20240317
  Transmission Date: 20240409
  Serious: Yes (Hospitalization)
  Sender: FDA-Public Use
  Company Number: KR-Accord-403343

PATIENT
  Age: 54 Year
  Sex: Male

DRUGS (4)
  1. FLUOROURACIL [Suspect]
     Active Substance: FLUOROURACIL
     Indication: Adenocarcinoma gastric
     Dosage: DAY 1, Q14D
     Route: 042
     Dates: start: 20230922, end: 20231219
  2. OXALIPLATIN [Suspect]
     Active Substance: OXALIPLATIN
     Indication: Adenocarcinoma gastric
     Dosage: DAY 1
     Route: 042
     Dates: start: 20230922
  3. LEUCOVORIN CALCIUM [Suspect]
     Active Substance: LEUCOVORIN CALCIUM
     Indication: Adenocarcinoma gastric
     Dosage: DAY 1, Q14D,
     Route: 042
     Dates: start: 20230922
  4. TISLELIZUMAB [Concomitant]
     Active Substance: TISLELIZUMAB
     Indication: Adenocarcinoma gastric
     Dosage: DAY 1, Q14D
     Route: 042
     Dates: start: 20230922

REACTIONS (1)
  - Pyrexia [Recovered/Resolved]

NARRATIVE: CASE EVENT DATE: 20231219
